FAERS Safety Report 15866293 (Version 2)
Quarter: 2019Q2

REPORT INFORMATION
  Report Type: Spontaneous
  Country: US (occurrence: US)
  Receive Date: 20190125
  Receipt Date: 20190424
  Transmission Date: 20190711
  Serious: No
  Sender: FDA-Public Use
  Company Number: US-PFIZER INC-2019033948

PATIENT
  Age: 2 Year
  Sex: Female

DRUGS (1)
  1. EUCRISA [Suspect]
     Active Substance: CRISABOROLE
     Indication: SKIN DISORDER
     Dosage: UNK, AS NEEDED (APPLY ONE TO TWO TIMES DAILY AS NEEDED)
     Dates: start: 201805

REACTIONS (3)
  - Product use issue [Unknown]
  - Drug ineffective [Unknown]
  - Pruritus [Unknown]
